FAERS Safety Report 5337005-2 (Version None)
Quarter: 2007Q2

REPORT INFORMATION
  Report Type: 
  Country: None (occurrence: None)
  Receive Date: 20070529
  Receipt Date: 20070518
  Transmission Date: 20071010
  Serious: Yes (Hospitalization)
  Sender: FDA-Public Use
  Company Number: CA-JNJFOC-20060800110

PATIENT
  Sex: Male

DRUGS (9)
  1. REMICADE [Suspect]
     Route: 042
  2. REMICADE [Suspect]
     Route: 042
  3. REMICADE [Suspect]
     Route: 042
  4. REMICADE [Suspect]
     Indication: CROHN'S DISEASE
     Route: 042
  5. CIPRO [Concomitant]
  6. NEXIUM [Concomitant]
  7. COZAAR [Concomitant]
  8. LASIX [Concomitant]
  9. PREDNISONE TAB [Concomitant]
     Indication: CROHN'S DISEASE

REACTIONS (9)
  - CANDIDA SEPSIS [None]
  - CARDIOMYOPATHY [None]
  - CLOSTRIDIAL INFECTION [None]
  - DEEP VEIN THROMBOSIS [None]
  - HYPERCALCAEMIA [None]
  - INTESTINAL PERFORATION [None]
  - MUSCLE NECROSIS [None]
  - PERITONITIS [None]
  - SMALL INTESTINAL OBSTRUCTION [None]
